FAERS Safety Report 5531320-5 (Version None)
Quarter: 2007Q4

REPORT INFORMATION
  Report Type: 
  Country: None (occurrence: None)
  Receive Date: 20071128
  Receipt Date: 20071115
  Transmission Date: 20080405
  Serious: Yes (Other)
  Sender: FDA-Public Use
  Company Number: 2006US002454

PATIENT
  Age: 7 Year
  Sex: Female
  Weight: 22 kg

DRUGS (2)
  1. PROTOPIC [Suspect]
     Indication: VITILIGO
     Dosage: 0.3 MG/G, TOPICAL
     Route: 061
     Dates: start: 20050801, end: 20060601
  2. ELIDEL [Suspect]
     Indication: VITILIGO
     Dosage: TOPICAL
     Route: 061
     Dates: start: 20050101, end: 20060101

REACTIONS (1)
  - BASAL CELL CARCINOMA [None]
